FAERS Safety Report 23953094 (Version 1)
Quarter: 2024Q2

REPORT INFORMATION
  Report Type: Other
  Country: CN (occurrence: None)
  Receive Date: 20240608
  Receipt Date: 20240608
  Transmission Date: 20240715
  Serious: Yes (Other)
  Sender: FDA-Public Use
  Company Number: CN-ROCHE-3577996

PATIENT
  Sex: Female

DRUGS (9)
  1. TRASTUZUMAB [Suspect]
     Active Substance: TRASTUZUMAB
     Indication: Breast cancer
     Dosage: 8 MG/KG FOR THE FIRST DOSE THEN 6 MG/KG. 21 DAYS AS A CYCLE FOR A TOTAL OF 6 CYCLES.440 MG/VIAL
     Route: 041
  2. TRASTUZUMAB [Suspect]
     Active Substance: TRASTUZUMAB
     Dosage: 8 MG/KG FOR THE FIRST DOSE THEN 6 MG/KG. 21 DAYS AS A CYCLE FOR A TOTAL OF 4 CYCLES.
     Route: 041
  3. PERTUZUMAB [Suspect]
     Active Substance: PERTUZUMAB
     Indication: Breast cancer
     Dosage: INITIAL DOSE 840 MG THEN REDUCED TO 420 MG. 21 DAYS AS A CYCLE FOR A TOTAL OF 6 CYCLES
     Route: 041
  4. PERTUZUMAB [Suspect]
     Active Substance: PERTUZUMAB
     Dosage: INITIAL DOSE 840 MG THEN REDUCED TO 420 MG. 21 DAYS AS A CYCLE FOR A TOTAL OF 4 CYCLES
     Route: 041
  5. DOCETAXEL [Suspect]
     Active Substance: DOCETAXEL\DOCETAXEL ANHYDROUS
     Indication: Breast cancer
     Dosage: 100 MG/M2 WHEN USED ALONE AND 75 MG/M2 WHEN USED IN COMBINATION WITH OTHER AGENTS. 21 DAYS AS A CYCL
     Route: 041
  6. CARBOPLATIN [Suspect]
     Active Substance: CARBOPLATIN
     Indication: Breast cancer
     Dosage: 5 TO 6 MG /(ML.MIN) 21 DAYS AS A CYCLE FOR A TOTAL OF 6 CYCLES. 10 ML(50 MG)/VIAL
     Route: 041
  7. PIRARUBICIN HYDROCHLORIDE [Suspect]
     Active Substance: PIRARUBICIN HYDROCHLORIDE
     Indication: Breast cancer
     Dosage: 40 TO 50 MG / M2. 21 DAYS AS A CYCLE FOR A TOTAL OF 4 CYCLES.
     Route: 041
  8. EPIRUBICIN [Suspect]
     Active Substance: EPIRUBICIN
     Indication: Breast cancer
     Dosage: 21 DAYS AS A CYCLE FOR A TOTAL OF 4 CYCLES. 10 MG/VIAL
     Route: 041
  9. CYCLOPHOSPHAMIDE [Suspect]
     Active Substance: CYCLOPHOSPHAMIDE
     Indication: Breast cancer
     Dosage: 21 DAYS AS A CYCLE FOR A TOTAL OF 4 CYCLES.
     Route: 041

REACTIONS (9)
  - White blood cell count decreased [Unknown]
  - Platelet count decreased [Unknown]
  - Nausea [Unknown]
  - Vomiting [Unknown]
  - Diarrhoea [Unknown]
  - Alopecia [Unknown]
  - Palmar-plantar erythrodysaesthesia syndrome [Unknown]
  - Stomatitis [Unknown]
  - Cardiotoxicity [Unknown]
